FAERS Safety Report 22603183 (Version 3)
Quarter: 2024Q3

REPORT INFORMATION
  Report Type: Spontaneous
  Country: CA (occurrence: CA)
  Receive Date: 20230615
  Receipt Date: 20240809
  Transmission Date: 20241017
  Serious: Yes (Other)
  Sender: CELLTRION
  Company Number: CA-CELLTRION INC.-2022CA007172

PATIENT

DRUGS (11)
  1. TRUXIMA [Suspect]
     Active Substance: RITUXIMAB-ABBS
     Indication: Rheumatoid arthritis
     Dosage: 1000 MILLIGRAM (INFUSION#1)
     Route: 042
     Dates: start: 20220516
  2. TRUXIMA [Suspect]
     Active Substance: RITUXIMAB-ABBS
     Dosage: 1000 MILLIGRAM
     Route: 042
     Dates: start: 20220516
  3. TRUXIMA [Suspect]
     Active Substance: RITUXIMAB-ABBS
     Dosage: 1000 MILLIGRAM (INFUSION#3)
     Route: 042
     Dates: start: 20220516
  4. TRUXIMA [Suspect]
     Active Substance: RITUXIMAB-ABBS
     Dosage: 1000 MG INFUSION#5
     Route: 042
     Dates: start: 20220516
  5. TRUXIMA [Suspect]
     Active Substance: RITUXIMAB-ABBS
     Dosage: 1000 MG INFUSION#7
     Route: 042
     Dates: start: 20220516
  6. TRUXIMA [Suspect]
     Active Substance: RITUXIMAB-ABBS
     Dosage: 1000 MG INFUSION#9
     Route: 042
     Dates: start: 20220516
  7. ACETAMINOPHEN [Concomitant]
     Active Substance: ACETAMINOPHEN
     Indication: Premedication
     Dosage: 650 MILLIGRAM, 30 MINUTES PRIOR TO THE INFUSION
     Route: 048
  8. DIPHENHYDRAMINE [Concomitant]
     Active Substance: DIPHENHYDRAMINE
     Indication: Premedication
     Dosage: 50 MILLIGRAM, 30 MINUTES PRIOR TO THE INFUSION
     Route: 048
  9. TYLENOL [Concomitant]
     Active Substance: ACETAMINOPHEN
     Indication: Premedication
     Dosage: 650 MILLIGRAM
     Route: 048
  10. BENADRYL [Concomitant]
     Active Substance: DIPHENHYDRAMINE HYDROCHLORIDE
     Indication: Premedication
     Dosage: 50 MILLIGRAM
     Route: 048
  11. SOLU-MEDROL [Concomitant]
     Active Substance: METHYLPREDNISOLONE SODIUM SUCCINATE
     Indication: Premedication
     Dosage: 100 MILLIGRAM
     Route: 042

REACTIONS (8)
  - Urticaria [Recovered/Resolved]
  - Pruritus [Recovered/Resolved]
  - Throat irritation [Recovered/Resolved]
  - Throat clearing [Recovered/Resolved]
  - Erythema [Recovered/Resolved]
  - Arthritis [Not Recovered/Not Resolved]
  - Product administration interrupted [Unknown]
  - Device infusion issue [Unknown]

NARRATIVE: CASE EVENT DATE: 20220516
